FAERS Safety Report 5324540-6 (Version None)
Quarter: 2007Q2

REPORT INFORMATION
  Report Type: 
  Country: None (occurrence: None)
  Receive Date: 20070508
  Receipt Date: 20070404
  Transmission Date: 20071010
  Serious: Yes (Other)
  Sender: FDA-Public Use
  Company Number: 2007VX000883

PATIENT
  Sex: Male

DRUGS (1)
  1. CHLORDIAZEPOXIDE HCL [Suspect]
     Indication: ALCOHOL WITHDRAWAL SYNDROME
     Dosage: 200 MG; TID;

REACTIONS (2)
  - HOMICIDE [None]
  - IMPRISONMENT [None]
